FAERS Safety Report 5724291-X (Version None)
Quarter: 2008Q2

REPORT INFORMATION
  Report Type: 
  Country: None (occurrence: None)
  Receive Date: 20080430
  Receipt Date: 20080418
  Transmission Date: 20081010
  Serious: Yes (Hospitalization)
  Sender: FDA-Public Use
  Company Number: GB-PFIZER INC-2008034952

PATIENT
  Sex: Female

DRUGS (9)
  1. PHENYTOIN [Suspect]
     Indication: CONVULSION
  2. AMOXICILLIN + CLAVULANATE POTASSIUM [Suspect]
  3. PENICILLIN [Suspect]
  4. LAMOTRIGINE [Suspect]
     Indication: CONVULSION
  5. BIO-CAL [Concomitant]
  6. IBUPROFEN [Concomitant]
  7. MELATONIN [Concomitant]
  8. VITAMIN E [Concomitant]
  9. ZINC [Concomitant]

REACTIONS (20)
  - ABNORMAL FAECES [None]
  - AUTISM [None]
  - BODY TEMPERATURE DECREASED [None]
  - CANDIDIASIS [None]
  - CONVULSION [None]
  - CRYING [None]
  - DIARRHOEA [None]
  - DRUG INEFFECTIVE [None]
  - EPISTAXIS [None]
  - IMPAIRED SELF-CARE [None]
  - LACTOSE INTOLERANCE [None]
  - PAIN [None]
  - PERIPHERAL COLDNESS [None]
  - PHARYNGEAL OEDEMA [None]
  - RASH [None]
  - RESIDUAL URINE [None]
  - TREMOR [None]
  - UPPER LIMB FRACTURE [None]
  - UPPER RESPIRATORY TRACT INFECTION [None]
  - VOMITING PROJECTILE [None]
